FAERS Safety Report 13958361 (Version 3)
Quarter: 2017Q3

REPORT INFORMATION
  Report Type: Spontaneous
  Country: US (occurrence: US)
  Receive Date: 20170912
  Receipt Date: 20170927
  Transmission Date: 20171128
  Serious: No
  Sender: FDA-Public Use
  Company Number: US-PFIZER INC-2017390717

PATIENT
  Age: 57 Year
  Sex: Female
  Weight: 58.97 kg

DRUGS (3)
  1. LYRICA [Suspect]
     Active Substance: PREGABALIN
     Indication: ARTHRALGIA
     Dosage: 150 MG, 1X/DAY (TAKING 2, 75MG CAPSULES TO EQUAL 150MG) ONCE AT NIGHT
     Route: 048
  2. LYRICA [Suspect]
     Active Substance: PREGABALIN
     Dosage: 75 MG, UNK
     Dates: start: 2014, end: 20170911
  3. LYRICA [Suspect]
     Active Substance: PREGABALIN
     Dosage: 75 MG, DAILY [ONCE AT NIGHT]
     Route: 048
     Dates: end: 20170904

REACTIONS (3)
  - Gait disturbance [Unknown]
  - Disturbance in attention [Unknown]
  - Product use in unapproved indication [Unknown]
